FAERS Safety Report 21987854 (Version 1)
Quarter: 2023Q1

REPORT INFORMATION
  Report Type: Spontaneous
  Country: US (occurrence: US)
  Receive Date: 20230214
  Receipt Date: 20230214
  Transmission Date: 20230417
  Serious: No
  Sender: FDA-Public Use
  Company Number: US-LUPIN PHARMACEUTICALS INC.-2023-00870

PATIENT

DRUGS (1)
  1. AMLODIPINE BESYLATE [Suspect]
     Active Substance: AMLODIPINE BESYLATE
     Indication: Blood pressure abnormal
     Dosage: 1 DOSAGE FORM, QD
     Route: 048
     Dates: start: 20230202

REACTIONS (4)
  - Dyspnoea [Unknown]
  - Dry eye [Unknown]
  - Wrong technique in product usage process [Unknown]
  - Product substitution issue [Unknown]

NARRATIVE: CASE EVENT DATE: 20230201
